FAERS Safety Report 15845509 (Version 1)
Quarter: 2019Q1

REPORT INFORMATION
  Report Type: Spontaneous
  Country: US (occurrence: US)
  Receive Date: 20190119
  Receipt Date: 20190119
  Transmission Date: 20190417
  Serious: No
  Sender: FDA-Public Use
  Company Number: US-TEVA-2018-US-992257

PATIENT
  Sex: Female

DRUGS (1)
  1. MICONAZOLE NITRATE CREAM, USP 2 % [Suspect]
     Active Substance: MICONAZOLE NITRATE
     Indication: CHAPPED LIPS
     Dates: start: 201812

REACTIONS (4)
  - Therapeutic response unexpected [Unknown]
  - Product use issue [Unknown]
  - Rash erythematous [Unknown]
  - Cheilitis [Unknown]

NARRATIVE: CASE EVENT DATE: 201812
